FAERS Safety Report 5349697-2 (Version None)
Quarter: 2007Q2

REPORT INFORMATION
  Report Type: 
  Country: None (occurrence: None)
  Receive Date: 20070607
  Receipt Date: 20070531
  Transmission Date: 20071010
  Serious: Yes (Death, Life-Threatening)
  Sender: FDA-Public Use
  Company Number: JP-ELI_LILLY_AND_COMPANY-JP200612002200

PATIENT
  Age: 46 Year
  Sex: Female
  Weight: 58 kg

DRUGS (6)
  1. ZYPREXA [Suspect]
     Indication: SCHIZOAFFECTIVE DISORDER
     Dosage: 10 MG, EACH EVENING
     Route: 048
     Dates: start: 20061017
  2. RISPERDAL                               /SWE/ [Concomitant]
     Route: 048
  3. SEROQUEL [Concomitant]
     Route: 048
  4. TEGRETOL [Concomitant]
     Dosage: 400 MG, DAILY (1/D)
     Route: 048
     Dates: start: 20010216
  5. VEGETAMIN A [Concomitant]
     Indication: INSOMNIA
     Dosage: 2 D/F, DAILY (1/D)
     Route: 048
  6. ROHYPNOL [Concomitant]
     Indication: INSOMNIA
     Dosage: 1 D/F, DAILY (1/D)
     Route: 048
     Dates: start: 20021119

REACTIONS (1)
  - CARDIO-RESPIRATORY ARREST [None]
